FAERS Safety Report 4983240-2 (Version None)
Quarter: 2006Q2

REPORT INFORMATION
  Report Type: 
  Country: None (occurrence: None)
  Receive Date: 20060419
  Receipt Date: 20060406
  Transmission Date: 20061013
  Serious: Yes (Hospitalization)
  Sender: FDA-Public Use
  Company Number: 2006037397

PATIENT
  Age: 75 Year
  Sex: Female
  Weight: 41.2 kg

DRUGS (14)
  1. CABERGOLINE [Suspect]
     Indication: PARKINSON'S DISEASE
     Dosage: 4 MG (4 MG, 1 IN 1 D), ORAL
     Route: 048
     Dates: start: 20040406, end: 20060312
  2. ANTIHYPERTENSIVES (ANTIHYPERTENSIVES) [Concomitant]
  3. ANTACIDS (ANTACIDS) [Concomitant]
  4. MENESIT (CARBIDOPA, LEVODOPA) [Concomitant]
  5. ALL OTHER THERAPEUTIC PRODUCTS (ALL OTHER THERAPEUTIC PRODUCTS) [Concomitant]
  6. AMLODIPINE [Concomitant]
  7. SIGMART (NICORANDIL) [Concomitant]
  8. PRORENAL (LIMAPROST) [Concomitant]
  9. CLONAZEPAM [Concomitant]
  10. TRYPTANOL (AMITRIOPTYLINE HYDROCHLORIDE) [Concomitant]
  11. MEXITIL [Concomitant]
  12. MYONAL (EPERISONE HYDROCHLORIDE) [Concomitant]
  13. NIZATIDINE [Concomitant]
  14. MARZULENE S (LEVOGLUTAMIDE, SODIUM GUALENATE) [Concomitant]

REACTIONS (3)
  - DYSURIA [None]
  - PYELECTASIA [None]
  - URINARY RETENTION [None]
